FAERS Safety Report 8295638-8 (Version None)
Quarter: 2012Q2

REPORT INFORMATION
  Report Type: 
  Country: None (occurrence: None)
  Receive Date: 20120418
  Receipt Date: 20120412
  Transmission Date: 20120825
  Serious: Yes (Disabling, Other)
  Sender: FDA-Public Use
  Company Number: US-MERCK-1202USA02465

PATIENT
  Age: 56 Year
  Sex: Female

DRUGS (8)
  1. FOSAMAX [Suspect]
     Route: 048
     Dates: start: 20040618, end: 20060208
  2. SYNTHROID [Concomitant]
     Indication: HYPERTHYROIDISM
     Route: 065
  3. ALLEGRA-D 12 HOUR [Concomitant]
     Indication: HYPERSENSITIVITY
     Route: 065
     Dates: start: 20020101, end: 20110101
  4. NASACORT [Concomitant]
     Indication: HYPERSENSITIVITY
     Route: 065
     Dates: start: 20060101, end: 20110101
  5. ADVAIR DISKUS 100/50 [Concomitant]
     Indication: ASTHMA
     Route: 055
     Dates: start: 20060101, end: 20100101
  6. FOSAMAX [Suspect]
     Route: 048
     Dates: start: 20010315, end: 20040117
  7. OGEN [Concomitant]
     Route: 065
     Dates: start: 19930101, end: 20050101
  8. FOSAMAX [Suspect]
     Indication: OSTEOPOROSIS
     Route: 048
     Dates: start: 19960327, end: 20010315

REACTIONS (13)
  - MEDICAL DEVICE COMPLICATION [None]
  - TOOTH DISORDER [None]
  - EXOSTOSIS [None]
  - FOOT FRACTURE [None]
  - GASTROOESOPHAGEAL REFLUX DISEASE [None]
  - FRACTURE NONUNION [None]
  - LOW TURNOVER OSTEOPATHY [None]
  - FUNGAL INFECTION [None]
  - OVERDOSE [None]
  - URINARY INCONTINENCE [None]
  - FEMUR FRACTURE [None]
  - ADVERSE EVENT [None]
  - DRUG HYPERSENSITIVITY [None]
